FAERS Safety Report 6613596-6 (Version None)
Quarter: 2010Q1

REPORT INFORMATION
  Report Type: 
  Country: None (occurrence: None)
  Receive Date: 20100304
  Receipt Date: 20100225
  Transmission Date: 20100710
  Serious: Yes (Other)
  Sender: FDA-Public Use
  Company Number: US-ROCHE-681423

PATIENT
  Sex: Female
  Weight: 110.2 kg

DRUGS (7)
  1. HERCEPTIN [Suspect]
     Indication: ILL-DEFINED DISORDER
     Dosage: DATE WAS REPORTED AS TWO DOSES,  DOSE AMOUNT: TRIPLE DOSE.
     Route: 042
  2. HERCEPTIN [Suspect]
     Route: 042
  3. ZOMETA [Suspect]
     Indication: ILL-DEFINED DISORDER
     Route: 042
     Dates: start: 20090901
  4. SYNTHROID [Concomitant]
  5. OMEPRAZOLE [Concomitant]
  6. VITAMIN B6/VITAMIN B12 [Concomitant]
  7. AROMASIN [Concomitant]

REACTIONS (3)
  - BLOOD CREATININE INCREASED [None]
  - FATIGUE [None]
  - OEDEMA PERIPHERAL [None]
